FAERS Safety Report 25877203 (Version 2)
Quarter: 2025Q4

REPORT INFORMATION
  Report Type: Spontaneous
  Country: CN (occurrence: CN)
  Receive Date: 20251003
  Receipt Date: 20251003
  Transmission Date: 20260117
  Serious: Yes (Other)
  Sender: STRIDES
  Company Number: None

PATIENT
  Age: 5 Year
  Sex: Male

DRUGS (4)
  1. HYDROCORTISONE [Suspect]
     Active Substance: HYDROCORTISONE
     Indication: Cerebral salt-wasting syndrome
     Dosage: 100 MILLIGRAM, EVERY 8 HOURS
     Route: 065
  2. FLUDROCORTISONE [Suspect]
     Active Substance: FLUDROCORTISONE
     Indication: Cerebral salt-wasting syndrome
     Dosage: 0.05 MILLIGRAM, EVERY 12 HRS, INITIAL DOSE
     Route: 065
  3. FLUDROCORTISONE [Suspect]
     Active Substance: FLUDROCORTISONE
     Dosage: 75 MICROGRAM, EVERY 12 HRS, 0.075 MG
     Route: 065
  4. SODIUM [Concomitant]
     Active Substance: SODIUM
     Indication: Supplementation therapy
     Dosage: UNK
     Route: 065

REACTIONS (2)
  - Hypokalaemia [Unknown]
  - Off label use [Unknown]
